FAERS Safety Report 7736536-5 (Version None)
Quarter: 2011Q3

REPORT INFORMATION
  Report Type: 
  Country: None (occurrence: None)
  Receive Date: 20110908
  Receipt Date: 20110825
  Transmission Date: 20111222
  Serious: Yes (Life-Threatening, Hospitalization)
  Sender: FDA-Public Use
  Company Number: DE-MYLANLABS-2011S1012293

PATIENT
  Age: 59 Year
  Sex: Female

DRUGS (2)
  1. AMITRIPTYLINE HCL [Suspect]
     Indication: PAIN
     Route: 048
     Dates: start: 20101222, end: 20101230
  2. METAMIZOLE [Suspect]
     Indication: PAIN
     Route: 048
     Dates: start: 20101222, end: 20101230

REACTIONS (2)
  - PANCYTOPENIA [None]
  - AGRANULOCYTOSIS [None]
